FAERS Safety Report 5916070-5 (Version None)
Quarter: 2008Q4

REPORT INFORMATION
  Report Type: 
  Country: None (occurrence: None)
  Receive Date: 20081013
  Receipt Date: 20081010
  Transmission Date: 20090506
  Serious: Yes (Death)
  Sender: FDA-Public Use
  Company Number: US-BRISTOL-MYERS SQUIBB COMPANY-14171417

PATIENT
  Age: 72 Year
  Sex: Female
  Weight: 69 kg

DRUGS (21)
  1. ORENCIA [Suspect]
     Indication: RHEUMATOID ARTHRITIS
     Dosage: LOT # 7L2649 RECEIVED 1 INFUSION.
     Route: 041
     Dates: start: 20080215, end: 20080215
  2. ENBREL [Concomitant]
     Route: 058
  3. ARAVA [Concomitant]
     Dosage: TAKEN ON TUESDAY AND THURSDAY
  4. CELEBREX [Concomitant]
  5. HYDROCHLOROTHIAZIDE [Concomitant]
  6. COREG [Concomitant]
  7. NORVASC [Concomitant]
  8. LIPITOR [Concomitant]
  9. DETROL LA [Concomitant]
  10. LEVOTHYROXINE SODIUM [Concomitant]
  11. FOSAMAX [Concomitant]
  12. LEXAPRO [Concomitant]
  13. FEOSOL [Concomitant]
  14. ASPIRIN [Concomitant]
  15. CALCIUM + MAGNESIUM [Concomitant]
  16. COD LIVER OIL [Concomitant]
  17. GARLIC [Concomitant]
  18. MULTI-VITAMINS [Concomitant]
  19. BENICAR [Concomitant]
  20. LIDODERM [Concomitant]
     Dosage: PATCH
  21. VENLAFAXINE HCL [Concomitant]

REACTIONS (1)
  - SUDDEN DEATH [None]
